FAERS Safety Report 11022749 (Version 3)
Quarter: 2015Q2

REPORT INFORMATION
  Report Type: Spontaneous
  Country: US (occurrence: US)
  Receive Date: 20150413
  Receipt Date: 20150505
  Transmission Date: 20150821
  Serious: Yes (Hospitalization, Other)
  Sender: FDA-Public Use
  Company Number: US-JAZZ-2015-US-005152

PATIENT
  Age: 73 Year
  Sex: Female

DRUGS (9)
  1. PRIALT [Suspect]
     Active Substance: ZICONOTIDE ACETATE
     Indication: POST LAMINECTOMY SYNDROME
     Dosage: 0.05 ?G, QH
     Route: 037
     Dates: end: 20150401
  2. PRIALT [Suspect]
     Active Substance: ZICONOTIDE ACETATE
     Dosage: 0.045 ?G, QH
     Route: 037
  3. SEROTONIN [Concomitant]
     Active Substance: SEROTONIN
  4. PRIALT [Suspect]
     Active Substance: ZICONOTIDE ACETATE
     Indication: PAIN
     Dosage: 0.049 ?G, QH
     Route: 037
     Dates: start: 20150316
  5. PRIALT [Suspect]
     Active Substance: ZICONOTIDE ACETATE
     Indication: CENTRAL PAIN SYNDROME
     Dosage: 0.033 ?G, QH
     Route: 037
     Dates: start: 20150401, end: 20150403
  6. PRIALT [Suspect]
     Active Substance: ZICONOTIDE ACETATE
     Dosage: 0.083 ?G, QH
     Route: 037
  7. IBUPROFEN. [Concomitant]
     Active Substance: IBUPROFEN
  8. VITAMIN D [Concomitant]
     Active Substance: CHOLECALCIFEROL
  9. LASIX [Concomitant]
     Active Substance: FUROSEMIDE

REACTIONS (12)
  - Headache [Recovering/Resolving]
  - Vomiting [Recovering/Resolving]
  - Swelling [Unknown]
  - Oedema peripheral [Recovering/Resolving]
  - Sinusitis [Recovering/Resolving]
  - Hypersensitivity [Unknown]
  - Malaise [Recovering/Resolving]
  - Cardiac disorder [Unknown]
  - Dyspnoea [Recovered/Resolved]
  - Seroma [Unknown]
  - Nausea [Recovering/Resolving]
  - Device issue [Not Recovered/Not Resolved]

NARRATIVE: CASE EVENT DATE: 201503
